FAERS Safety Report 10529762 (Version 1)
Quarter: 2014Q4

REPORT INFORMATION
  Report Type: Spontaneous
  Country: GB (occurrence: GB)
  Receive Date: 20141021
  Receipt Date: 20141021
  Transmission Date: 20150528
  Serious: Yes (Disabling)
  Sender: FDA-Public Use
  Company Number: GB-RANBAXY-2014RR-86872

PATIENT

DRUGS (1)
  1. ISOTRETINOIN [Suspect]
     Active Substance: ISOTRETINOIN
     Indication: ACNE
     Dosage: 40 MG, UNK
     Route: 048
     Dates: start: 20130515, end: 20130906

REACTIONS (4)
  - Bone deformity [Not Recovered/Not Resolved]
  - Growth retardation [Not Recovered/Not Resolved]
  - Blood growth hormone decreased [Unknown]
  - Libido decreased [Not Recovered/Not Resolved]
